FAERS Safety Report 10162764 (Version 2)
Quarter: 2014Q2

REPORT INFORMATION
  Report Type: Spontaneous
  Country: JP (occurrence: JP)
  Receive Date: 20140509
  Receipt Date: 20140611
  Transmission Date: 20141212
  Serious: Yes (Other)
  Sender: FDA-Public Use
  Company Number: JP-PFIZER INC-2014125634

PATIENT
  Age: 23 Year
  Sex: Female

DRUGS (1)
  1. PREMARIN [Suspect]
     Dosage: 2 TABLETS PER DAY
     Route: 048

REACTIONS (1)
  - Vocal cord paralysis [Unknown]
